FAERS Safety Report 9982308 (Version 1)
Quarter: 2014Q1

REPORT INFORMATION
  Report Type: Report from Study
  Country: US (occurrence: US)
  Receive Date: 20140307
  Receipt Date: 20140307
  Transmission Date: 20141002
  Serious: No
  Sender: FDA-Public Use
  Company Number: US-ABBVIE-13P-163-1180083-00

PATIENT
  Age: 69 Year
  Sex: Male

DRUGS (9)
  1. HUMIRA [Suspect]
     Indication: COLITIS ULCERATIVE
     Dates: start: 20130313
  2. LIALDA [Concomitant]
     Indication: COLITIS ULCERATIVE
     Route: 048
  3. ACIPHEX [Concomitant]
     Indication: GASTROOESOPHAGEAL REFLUX DISEASE
     Route: 048
  4. ATIVAN [Concomitant]
     Indication: INSOMNIA
  5. FLONASE [Concomitant]
     Indication: HYPERSENSITIVITY
     Dosage: ONCE IN A WHILE
  6. ZYRTEC [Concomitant]
     Indication: HYPERSENSITIVITY
     Dosage: PATIENT MAY TAKE IT IN THE SUMMER
  7. MULTIVITAMIN [Concomitant]
     Indication: PRODUCT USED FOR UNKNOWN INDICATION
     Dosage: WHEN HE REMEMBERS
  8. IBUPROFEN [Concomitant]
     Indication: BACK PAIN
  9. IBUPROFEN [Concomitant]
     Indication: ARTHRALGIA

REACTIONS (2)
  - Fatigue [Not Recovered/Not Resolved]
  - Middle insomnia [Not Recovered/Not Resolved]
